FAERS Safety Report 8069856 (Version 2)
Quarter: 2012Q4

REPORT INFORMATION
  Report Type: 
  Country: IT (occurrence: IT)
  Receive Date: 20110804
  Receipt Date: 20121004
  Transmission Date: 20130627
  Serious: Yes (Other)
  Sender: FDA-Public Use
  Company Number: PHHY2011IT67164

PATIENT
  Age: 73 Year
  Sex: Male

DRUGS (2)
  1. AFINITOR [Suspect]
     Indication: RENAL CELL CARCINOMA
     Dosage: 10 mg, daily
     Route: 048
     Dates: start: 20100910, end: 20100929
  2. PREDNISONE [Concomitant]
     Dosage: 25 mg, daily

REACTIONS (3)
  - Skin exfoliation [Unknown]
  - Mucosal inflammation [Unknown]
  - Oedema [Unknown]
